FAERS Safety Report 17657122 (Version 1)
Quarter: 2020Q2

REPORT INFORMATION
  Report Type: Spontaneous
  Country: US (occurrence: US)
  Receive Date: 20200410
  Receipt Date: 20200410
  Transmission Date: 20200713
  Serious: Yes (Other)
  Sender: FDA-Public Use
  Company Number: US-TEVA-2020-US-1220136

PATIENT
  Sex: Male

DRUGS (2)
  1. TESTOSTERONE TEVA [Suspect]
     Active Substance: TESTOSTERONE
     Route: 065
  2. HALOPERIDOL. [Concomitant]
     Active Substance: HALOPERIDOL
     Dosage: SOLUTION
     Route: 048

REACTIONS (1)
  - Hallucination [Not Recovered/Not Resolved]
